FAERS Safety Report 12786418 (Version 1)
Quarter: 2016Q3

REPORT INFORMATION
  Report Type: Spontaneous
  Country: US (occurrence: US)
  Receive Date: 20160927
  Receipt Date: 20160927
  Transmission Date: 20161109
  Serious: No
  Sender: FDA-Public Use
  Company Number: US-FRI-1000084517

PATIENT
  Sex: Male
  Weight: 115.66 kg

DRUGS (7)
  1. OXYCODONE [Concomitant]
     Active Substance: OXYCODONE
     Indication: SPINAL OPERATION
  2. ACTOS [Concomitant]
     Active Substance: PIOGLITAZONE HYDROCHLORIDE
     Indication: DIABETES MELLITUS
     Dosage: UNK
  3. LINZESS [Suspect]
     Active Substance: LINACLOTIDE
     Indication: CONSTIPATION
     Dosage: 145 ?G, QD
     Route: 048
     Dates: start: 2016, end: 2016
  4. OXYCODONE [Concomitant]
     Active Substance: OXYCODONE
     Indication: MUSCULOSKELETAL PAIN
     Dosage: 2 PER DAY
  5. FENTANYL. [Concomitant]
     Active Substance: FENTANYL
     Indication: MUSCULOSKELETAL PAIN
     Dosage: AT NIGHT
     Route: 062
  6. FENTANYL. [Concomitant]
     Active Substance: FENTANYL
     Indication: SPINAL OPERATION
  7. LOSARTAN. [Concomitant]
     Active Substance: LOSARTAN
     Indication: HYPERTENSION
     Dosage: UNK

REACTIONS (5)
  - Insomnia [Recovered/Resolved]
  - Drug effect decreased [Recovered/Resolved]
  - Off label use [Recovered/Resolved]
  - Intentional product misuse [Recovered/Resolved]
  - Diarrhoea [Recovered/Resolved]

NARRATIVE: CASE EVENT DATE: 2016
